FAERS Safety Report 4530412-7 (Version None)
Quarter: 2004Q4

REPORT INFORMATION
  Report Type: 
  Country: None (occurrence: None)
  Receive Date: 20041215
  Receipt Date: 20041201
  Transmission Date: 20050328
  Serious: No
  Sender: FDA-Public Use
  Company Number: 2004UW24858

PATIENT
  Age: 37 Year
  Sex: Female
  Weight: 73 kg

DRUGS (5)
  1. NEXIUM [Suspect]
     Indication: GASTRITIS
     Dosage: 40 MG PO
     Route: 048
     Dates: start: 20041126
  2. NEXIUM [Suspect]
     Indication: OESOPHAGITIS
     Dosage: 40 MG PO
     Route: 048
     Dates: start: 20041126
  3. PLENTY [Suspect]
     Indication: WEIGHT CONTROL
     Dosage: 15 MG DAILY PO
     Route: 048
     Dates: start: 20041122, end: 20041130
  4. YASMIN [Concomitant]
  5. PURAN [Concomitant]

REACTIONS (4)
  - DRUG INTERACTION [None]
  - HEADACHE [None]
  - HYPERTENSION [None]
  - NAUSEA [None]
